FAERS Safety Report 7202131-X (Version None)
Quarter: 2010Q4

REPORT INFORMATION
  Report Type: 
  Country: None (occurrence: None)
  Receive Date: 20101229
  Receipt Date: 20101215
  Transmission Date: 20110411
  Serious: Yes (Other)
  Sender: FDA-Public Use
  Company Number: PHFR2010GB04646

PATIENT
  Age: 76 Year
  Sex: Female

DRUGS (12)
  1. RIVASTIGMINE [Suspect]
     Indication: DEMENTIA
     Dosage: 4.6 MG, UNK
     Route: 062
     Dates: start: 20100427, end: 20100428
  2. AMITRIPTYLINE HCL [Concomitant]
     Dosage: 25 MG, QD
  3. ASPIRIN [Concomitant]
     Dosage: 150 MG, QD
  4. ASPIRIN [Concomitant]
     Dosage: 75 MG
     Route: 048
  5. DONEPEZIL HCL [Concomitant]
     Dosage: 10 MG, UNK
  6. FUROSEMIDE [Concomitant]
     Dosage: 40 MG, QD
  7. ISOTARD XL [Concomitant]
     Dosage: 60 MG, BID
  8. METFORMIN [Concomitant]
     Dosage: 500 MG, TID
  9. METOPROLOL [Concomitant]
     Dosage: 100 MG, BID
  10. NICORANDIL [Concomitant]
     Dosage: 10 MG, BID
  11. NOVOMIX [Concomitant]
  12. SIMVASTATIN [Concomitant]
     Dosage: 40 MG, QD

REACTIONS (1)
  - HYPOGLYCAEMIA [None]
